FAERS Safety Report 16849960 (Version 1)
Quarter: 2019Q3

REPORT INFORMATION
  Report Type: Spontaneous
  Country: US (occurrence: US)
  Receive Date: 20190802
  Receipt Date: 20190802
  Transmission Date: 20191005
  Serious: Yes (Hospitalization)
  Sender: FDA-Public Use
  Company Number: None

PATIENT
  Age: 66 Year
  Sex: Male
  Weight: 109.8 kg

DRUGS (1)
  1. NALOXEGOL OXALATE. [Suspect]
     Active Substance: NALOXEGOL OXALATE
     Dates: end: 20190710

REACTIONS (9)
  - Confusional state [None]
  - Fatigue [None]
  - Diarrhoea [None]
  - Vomiting [None]
  - Blood count abnormal [None]
  - Pain [None]
  - Hyperhidrosis [None]
  - Chills [None]
  - Pollakiuria [None]

NARRATIVE: CASE EVENT DATE: 20190716
